FAERS Safety Report 10495455 (Version 1)
Quarter: 2014Q4

REPORT INFORMATION
  Report Type: Spontaneous
  Country: IT (occurrence: IT)
  Receive Date: 20141003
  Receipt Date: 20141003
  Transmission Date: 20150528
  Serious: Yes (Hospitalization)
  Sender: FDA-Public Use
  Company Number: IT-ELI_LILLY_AND_COMPANY-IT201409009962

PATIENT
  Age: 60 Year
  Sex: Male

DRUGS (7)
  1. LASIX [Concomitant]
     Active Substance: FUROSEMIDE
     Dosage: 50 MG, QD
     Route: 048
  2. HUMALOG [Suspect]
     Active Substance: INSULIN LISPRO
     Indication: DIABETES MELLITUS
     Dosage: 55 DF, QD
     Route: 058
     Dates: start: 20100101
  3. TAREG [Concomitant]
     Active Substance: VALSARTAN
     Dosage: 160 MG, QD
  4. LISPRO [Suspect]
     Active Substance: INSULIN LISPRO
     Indication: DIABETES MELLITUS
     Dosage: 16 DF, QD
     Route: 058
     Dates: start: 20100101
  5. INDERAL [Concomitant]
     Active Substance: PROPRANOLOL HYDROCHLORIDE
     Dosage: 40 MG, UNK
  6. URSOBIL [Concomitant]
     Dosage: 450 MG, UNK
     Route: 048
  7. KANRENOL [Concomitant]
     Active Substance: CANRENOATE POTASSIUM
     Dosage: 100 MG, UNK
     Route: 048

REACTIONS (2)
  - Confusional state [Recovered/Resolved]
  - Hypoglycaemia [Recovered/Resolved]

NARRATIVE: CASE EVENT DATE: 20140902
